FAERS Safety Report 5031035-6 (Version None)
Quarter: 2006Q2

REPORT INFORMATION
  Report Type: 
  Country: None (occurrence: None)
  Receive Date: 20060621
  Receipt Date: 20060612
  Transmission Date: 20061013
  Serious: Yes (Hospitalization)
  Sender: FDA-Public Use
  Company Number: NL-JNJFOC-20060602852

PATIENT
  Age: 28 Year
  Sex: Male
  Weight: 140 kg

DRUGS (2)
  1. RISPERDAL CONSTA [Suspect]
     Indication: SCHIZOPHRENIA
     Route: 030
  2. RISPERDAL [Concomitant]

REACTIONS (3)
  - AGGRESSION [None]
  - DISINHIBITION [None]
  - SUICIDAL IDEATION [None]
